FAERS Safety Report 10135709 (Version 3)
Quarter: 2014Q2

REPORT INFORMATION
  Report Type: Report from Study
  Country: TR (occurrence: TR)
  Receive Date: 20140428
  Receipt Date: 20140505
  Transmission Date: 20141212
  Serious: Yes (Death, Hospitalization)
  Sender: FDA-Public Use
  Company Number: PHHY2014TR031351

PATIENT
  Sex: Male

DRUGS (1)
  1. SANDOSTATIN LAR [Suspect]
     Indication: NEUROENDOCRINE TUMOUR
     Dosage: 20 MG, ONCE EVERY 28 DAYS
     Route: 030
     Dates: start: 20140120, end: 20140215

REACTIONS (4)
  - Death [Fatal]
  - Bile duct obstruction [Unknown]
  - Renal failure [Not Recovered/Not Resolved]
  - Vomiting [Not Recovered/Not Resolved]
